FAERS Safety Report 23773249 (Version 1)
Quarter: 2024Q2

REPORT INFORMATION
  Report Type: Spontaneous
  Country: JP (occurrence: JP)
  Receive Date: 20240423
  Receipt Date: 20240423
  Transmission Date: 20240716
  Serious: Yes (Other)
  Sender: FDA-Public Use
  Company Number: JP-DSJP-DSJ-2024-104655

PATIENT
  Age: 9 Decade
  Sex: Female

DRUGS (2)
  1. EDOXABAN TOSYLATE [Interacting]
     Active Substance: EDOXABAN TOSYLATE
     Indication: Atrial fibrillation
     Dosage: 30 MG, QD
     Route: 048
     Dates: start: 20231013, end: 20240116
  2. ENSITRELVIR FUMARATE [Interacting]
     Active Substance: ENSITRELVIR FUMARATE
     Indication: COVID-19
     Dosage: UNK
     Route: 048
     Dates: start: 20240115, end: 20240119

REACTIONS (3)
  - Melaena [Recovered/Resolved]
  - Drug interaction [Unknown]
  - COVID-19 [Unknown]

NARRATIVE: CASE EVENT DATE: 20240113
